FAERS Safety Report 4380468-X (Version None)
Quarter: 2004Q2

REPORT INFORMATION
  Report Type: 
  Country: None (occurrence: None)
  Receive Date: 20040614
  Receipt Date: 20040527
  Transmission Date: 20050107
  Serious: Yes (Hospitalization, Other)
  Sender: FDA-Public Use
  Company Number: A-US2004-06442

PATIENT
  Age: 65 Year
  Sex: Female

DRUGS (5)
  1. TRACLEER [Suspect]
     Indication: PULMONARY HYPERTENSION
     Dosage: 62.5 MG , BID, ORAL
     Route: 048
     Dates: start: 20040517
  2. REMERON [Concomitant]
  3. LEXAPRO [Concomitant]
  4. COZAAR [Concomitant]
  5. LIPITOR [Concomitant]

REACTIONS (2)
  - ANXIETY [None]
  - VIRAL INFECTION [None]
